FAERS Safety Report 8376765-3 (Version None)
Quarter: 2012Q2

REPORT INFORMATION
  Report Type: 
  Country: None (occurrence: None)
  Receive Date: 20120522
  Receipt Date: 20120209
  Transmission Date: 20120825
  Serious: No
  Sender: FDA-Public Use
  Company Number: US-BRISTOL-MYERS SQUIBB COMPANY-16393100

PATIENT
  Age: 75 Year
  Sex: Female

DRUGS (3)
  1. METFORMIN HCL [Suspect]
  2. KOMBOGLYZE [Suspect]
     Indication: TYPE 2 DIABETES MELLITUS
     Dosage: 1DF=5MG/500MG ;ABOUT 1 MONTH OR SO AGO
  3. SAXAGLIPTIN [Suspect]

REACTIONS (5)
  - HEADACHE [None]
  - INSOMNIA [None]
  - NAUSEA [None]
  - FATIGUE [None]
  - HYPERCHLORHYDRIA [None]
